FAERS Safety Report 6637592-8 (Version None)
Quarter: 2010Q1

REPORT INFORMATION
  Report Type: 
  Country: None (occurrence: None)
  Receive Date: 20100311
  Receipt Date: 20100226
  Transmission Date: 20100710
  Serious: Yes (Hospitalization)
  Sender: FDA-Public Use
  Company Number: 220002K09IRL

PATIENT
  Age: 3 Year
  Sex: Female
  Weight: 15 kg

DRUGS (3)
  1. SAIZEN [Suspect]
     Indication: TURNER'S SYNDROME
     Dosage: 0.6 MG, SUBCUTANEOUS
     Route: 058
     Dates: start: 20081024, end: 20090501
  2. TRIMETHOPRIM [Concomitant]
  3. MELATONIN (MELATONIN) [Concomitant]

REACTIONS (2)
  - HYPERTENSION [None]
  - SINUS TACHYCARDIA [None]
